FAERS Safety Report 4300679-9 (Version None)
Quarter: 2004Q1

REPORT INFORMATION
  Report Type: 
  Country: None (occurrence: None)
  Receive Date: 20040218
  Receipt Date: 20040130
  Transmission Date: 20041129
  Serious: Yes (Death, Hospitalization, Other)
  Sender: FDA-Public Use
  Company Number: USA031152177

PATIENT
  Age: 85 Year
  Sex: Female

DRUGS (2)
  1. GEMZAR [Suspect]
     Indication: LYMPHOMA
  2. RITUXAN [Concomitant]

REACTIONS (10)
  - ACUTE MYOCARDIAL INFARCTION [None]
  - ARRHYTHMIA [None]
  - ASTHENIA [None]
  - CAPILLARY LEAK SYNDROME [None]
  - CHILLS [None]
  - DIZZINESS [None]
  - FATIGUE [None]
  - HYPOTENSION [None]
  - PLEURAL EFFUSION [None]
  - TREMOR [None]
